FAERS Safety Report 5409403-X (Version None)
Quarter: 2007Q3

REPORT INFORMATION
  Report Type: 
  Country: None (occurrence: None)
  Receive Date: 20070808
  Receipt Date: 20070808
  Transmission Date: 20080115
  Serious: Yes (Other)
  Sender: FDA-Public Use
  Company Number: None

PATIENT
  Sex: Female
  Weight: 81.9 kg

DRUGS (16)
  1. OXACILLIN [Suspect]
     Indication: BACTERAEMIA
     Dosage: 2GM EVERY 4 HOURS IV BOLUS
     Route: 040
     Dates: start: 20070727, end: 20070806
  2. AZACTAM [Suspect]
     Indication: INTERVERTEBRAL DISC DISORDER
     Dosage: 1GM EVERY 8 HOURS IV BOLUS
     Route: 040
     Dates: start: 20070727, end: 20070806
  3. NEXIUM [Concomitant]
  4. COLACE [Concomitant]
  5. BENICAR HCT [Concomitant]
  6. CYMBALTA [Concomitant]
  7. SKELAXIN [Concomitant]
  8. REQUIP [Concomitant]
  9. FOLIC ACID [Concomitant]
  10. PALADIN OINT [Concomitant]
  11. MICONAZOLE NITRATE [Concomitant]
  12. AMBIEN CR [Concomitant]
  13. IMODIUM [Concomitant]
  14. ACETAMINOPHEN AND HYDROCODONE BITARTRATE [Concomitant]
  15. MILK OF MAGNESIA [Concomitant]
  16. ULTRACET TAB [Concomitant]

REACTIONS (1)
  - RASH [None]
